FAERS Safety Report 5355521-4 (Version None)
Quarter: 2007Q2

REPORT INFORMATION
  Report Type: 
  Country: None (occurrence: None)
  Receive Date: 20070613
  Receipt Date: 20070518
  Transmission Date: 20071010
  Serious: No
  Sender: FDA-Public Use
  Company Number: VE-AVENTIS-200620732GDDC

PATIENT
  Age: 23 Year
  Sex: Female

DRUGS (1)
  1. ARAVA [Suspect]
     Indication: RHEUMATOID ARTHRITIS
     Dosage: DOSE: UNK
     Dates: end: 20060901

REACTIONS (1)
  - DRUG EXPOSURE DURING PREGNANCY [None]
